FAERS Safety Report 7438732-3 (Version None)
Quarter: 2011Q2

REPORT INFORMATION
  Report Type: 
  Country: None (occurrence: None)
  Receive Date: 20110426
  Receipt Date: 20110412
  Transmission Date: 20111010
  Serious: Yes (Hospitalization)
  Sender: FDA-Public Use
  Company Number: JP-ACTELION-A-CH2011-47524

PATIENT
  Sex: Female
  Weight: 37 kg

DRUGS (14)
  1. TRACLEER [Suspect]
     Indication: PULMONARY ARTERIAL HYPERTENSION
     Dosage: 62.5 MG, BID
     Route: 048
     Dates: start: 20080402, end: 20080428
  2. MISOPROSTOL [Concomitant]
  3. POLAPREZINC [Concomitant]
  4. LANSOPRAZOLE [Concomitant]
  5. ECABET [Concomitant]
  6. RISEDRONATE SODIUM [Concomitant]
  7. OXYGEN [Concomitant]
  8. MANIDIPINE HYDROCHLORIDE [Concomitant]
  9. CEVIMELINE HYDROCHLORIDE [Concomitant]
  10. TORSEMIDE [Concomitant]
  11. PREDNISOLONE [Concomitant]
  12. ASPIRIN [Concomitant]
  13. ETODOLAC [Concomitant]
  14. LOSARTAN POTASSIUM [Concomitant]

REACTIONS (5)
  - PULMONARY TUBERCULOSIS [None]
  - GAMMA-GLUTAMYLTRANSFERASE INCREASED [None]
  - PYREXIA [None]
  - ASPARTATE AMINOTRANSFERASE INCREASED [None]
  - BLOOD ALKALINE PHOSPHATASE INCREASED [None]
